FAERS Safety Report 15353475 (Version 1)
Quarter: 2018Q3

REPORT INFORMATION
  Report Type: Report from Study
  Country: PH (occurrence: PH)
  Receive Date: 20180905
  Receipt Date: 20180905
  Transmission Date: 20181010
  Serious: Yes (Death)
  Sender: FDA-Public Use
  Company Number: PH-INCYTE CORPORATION-2018IN008637

PATIENT

DRUGS (1)
  1. JAKAVI [Suspect]
     Active Substance: RUXOLITINIB
     Indication: MYELOFIBROSIS
     Dosage: 5 MG, BID
     Route: 048
     Dates: start: 20170724, end: 20180401

REACTIONS (3)
  - Myelofibrosis [Fatal]
  - Pain [Fatal]
  - Decreased appetite [Fatal]

NARRATIVE: CASE EVENT DATE: 20180606
